FAERS Safety Report 7935923-X (Version None)
Quarter: 2011Q4

REPORT INFORMATION
  Report Type: 
  Country: None (occurrence: None)
  Receive Date: 20111123
  Receipt Date: 20111111
  Transmission Date: 20120403
  Serious: Yes (Hospitalization)
  Sender: FDA-Public Use
  Company Number: DE-ELI_LILLY_AND_COMPANY-DE201102000671

PATIENT
  Sex: Male
  Weight: 88 kg

DRUGS (10)
  1. PEMETREXED [Suspect]
     Indication: NON-SMALL CELL LUNG CANCER
     Dosage: 1015 MG, UNK
     Dates: start: 20101125
  2. CANDESARTAN CILEXETIL [Concomitant]
     Indication: HYPERTENSION
     Dosage: 32 MG, UNK
     Dates: start: 20101125, end: 20110130
  3. CARVEDILOL [Concomitant]
     Indication: HYPERTENSION
     Dates: start: 20101125, end: 20110130
  4. GLIMEPIRID [Concomitant]
     Indication: DIABETES MELLITUS
     Dosage: 1 MG, UNK
     Dates: start: 20110103
  5. URAPIDIL [Concomitant]
     Indication: HYPERTENSION
     Dates: start: 20101125, end: 20110130
  6. METAMIZOL /06276702/ [Concomitant]
     Indication: CHEST PAIN
     Dosage: 500 MG, UNK
     Dates: start: 20101124
  7. CANDESARTAN CILEXETIL [Concomitant]
     Dates: start: 20110131
  8. PANTOPRAZOLE [Concomitant]
     Indication: DYSPEPSIA
     Dates: start: 20101124
  9. CARVEDILOL [Concomitant]
     Dosage: 25 MG, UNK
     Dates: start: 20110131
  10. CISPLATIN [Suspect]
     Indication: NON-SMALL CELL LUNG CANCER
     Dosage: 152 MG, UNK
     Dates: start: 20101125

REACTIONS (1)
  - HYPOTONIA [None]
